FAERS Safety Report 13124683 (Version 1)
Quarter: 2017Q1

REPORT INFORMATION
  Report Type: Spontaneous
  Country: US (occurrence: US)
  Receive Date: 20170118
  Receipt Date: 20170118
  Transmission Date: 20170428
  Serious: No
  Sender: FDA-Public Use
  Company Number: US-TEVA-725336ACC

PATIENT
  Age: 23 Year
  Sex: Female
  Weight: 74.91 kg

DRUGS (1)
  1. ESOMEPRAZOLE MAGNESIUM. [Suspect]
     Active Substance: ESOMEPRAZOLE MAGNESIUM
     Indication: GASTROOESOPHAGEAL REFLUX DISEASE
     Dates: end: 20161019

REACTIONS (1)
  - Gluten sensitivity [Unknown]

NARRATIVE: CASE EVENT DATE: 20161015
